FAERS Safety Report 10676502 (Version 1)
Quarter: 2014Q4

REPORT INFORMATION
  Report Type: Spontaneous
  Country: US (occurrence: None)
  Receive Date: 20141223
  Receipt Date: 20141223
  Transmission Date: 20150529
  Serious: No
  Sender: FDA-Public Use
  Company Number: None

PATIENT
  Age: 57 Year
  Sex: Female

DRUGS (1)
  1. RESTASIS [Suspect]
     Active Substance: CYCLOSPORINE
     Indication: DRY EYE
     Dosage: RESTASIS, TWICE DAILY, INTO THE EYE
     Dates: start: 20141022, end: 20141222

REACTIONS (1)
  - Eye pain [None]

NARRATIVE: CASE EVENT DATE: 20141022
